FAERS Safety Report 6712373-5 (Version None)
Quarter: 2010Q2

REPORT INFORMATION
  Report Type: 
  Country: None (occurrence: None)
  Receive Date: 20100505
  Receipt Date: 20100503
  Transmission Date: 20101027
  Serious: Yes (Death, Hospitalization, Disabling, Other)
  Sender: FDA-Public Use
  Company Number: US-MERCK-0907USA04403

PATIENT
  Age: 82 Year
  Sex: Male
  Weight: 75 kg

DRUGS (2)
  1. FOSAMAX [Suspect]
     Indication: OSTEOPOROSIS
     Route: 048
     Dates: start: 20000101, end: 20070101
  2. FOSAMAX [Suspect]
     Route: 048
     Dates: start: 20030101

REACTIONS (59)
  - ABASIA [None]
  - ADVERSE EVENT [None]
  - ANXIETY [None]
  - AORTIC STENOSIS [None]
  - ARTERIOSCLEROSIS CORONARY ARTERY [None]
  - ASPIRATION [None]
  - ASTHENIA [None]
  - BACK PAIN [None]
  - BLOOD GLUCOSE ABNORMAL [None]
  - BRONCHITIS [None]
  - BUNION [None]
  - BURSITIS [None]
  - CARDIAC FAILURE CONGESTIVE [None]
  - CARDIOPULMONARY FAILURE [None]
  - CEREBROVASCULAR DISORDER [None]
  - CHRONIC OBSTRUCTIVE PULMONARY DISEASE [None]
  - COLITIS ISCHAEMIC [None]
  - DECREASED APPETITE [None]
  - DECUBITUS ULCER [None]
  - DENTAL CARIES [None]
  - DEPRESSION [None]
  - DISABILITY [None]
  - DIZZINESS [None]
  - DRY EYE [None]
  - DRY MOUTH [None]
  - DYSPHAGIA [None]
  - DYSPNOEA EXERTIONAL [None]
  - DYSSTASIA [None]
  - EXTRADURAL HAEMATOMA [None]
  - EYE PRURITUS [None]
  - FALL [None]
  - GASTROINTESTINAL PAIN [None]
  - HIP FRACTURE [None]
  - HYPERLIPIDAEMIA [None]
  - HYPOAESTHESIA [None]
  - INSOMNIA [None]
  - JOINT RANGE OF MOTION DECREASED [None]
  - LACUNAR INFARCTION [None]
  - LARGE INTESTINAL ULCER [None]
  - MUSCLE SPASTICITY [None]
  - MYOCARDIAL ISCHAEMIA [None]
  - OSTEOARTHRITIS [None]
  - OSTEOPENIA [None]
  - PERIARTHRITIS [None]
  - PERIODIC LIMB MOVEMENT DISORDER [None]
  - PNEUMONIA [None]
  - POOR QUALITY SLEEP [None]
  - RADICULOPATHY [None]
  - RESPIRATORY FAILURE [None]
  - SLEEP APNOEA SYNDROME [None]
  - SPINAL COLUMN STENOSIS [None]
  - SPINAL COMPRESSION FRACTURE [None]
  - SPINAL FRACTURE [None]
  - SPINAL OSTEOARTHRITIS [None]
  - TENDONITIS [None]
  - THYROID MASS [None]
  - TREMOR [None]
  - WEIGHT DECREASED [None]
  - WEIGHT INCREASED [None]
